FAERS Safety Report 6562002-9 (Version None)
Quarter: 2010Q1

REPORT INFORMATION
  Report Type: 
  Country: None (occurrence: None)
  Receive Date: 20100130
  Receipt Date: 20091124
  Transmission Date: 20100710
  Serious: No
  Sender: FDA-Public Use
  Company Number: PR-ABBOTT-09P-131-0610640-00

PATIENT
  Sex: Female
  Weight: 97.156 kg

DRUGS (11)
  1. HUMIRA [Suspect]
     Indication: RHEUMATOID ARTHRITIS
     Dosage: 4339, 1 PEN QOW
     Route: 058
     Dates: start: 20091028
  2. RALOXIFENE HCL [Interacting]
     Indication: BREAST CANCER
     Route: 048
  3. RALOXIFENE HCL [Interacting]
     Indication: PROPHYLAXIS
  4. NIFEDIPINE [Interacting]
     Indication: HYPERTENSION
     Route: 048
  5. PROCARDIA XL [Concomitant]
     Indication: HYPERTENSION
     Route: 048
  6. LASIX [Concomitant]
     Indication: HYPERTENSION
     Route: 048
  7. EVISTA [Concomitant]
     Indication: BREAST CANCER
     Route: 048
  8. EVISTA [Concomitant]
     Indication: PROPHYLAXIS
  9. PRILOSEC [Concomitant]
     Indication: GASTROOESOPHAGEAL REFLUX DISEASE
     Route: 048
  10. FOLIC ACID [Concomitant]
     Indication: ALOPECIA
     Dosage: 1-2 MILLIGRAMS, 1 OR 2 TABS DAILY
     Route: 048
  11. CENTRUM SILVER [Concomitant]
     Indication: VITAMIN SUPPLEMENTATION
     Route: 048

REACTIONS (3)
  - DRUG INTERACTION [None]
  - HYPERHIDROSIS [None]
  - INFLUENZA LIKE ILLNESS [None]
